FAERS Safety Report 24358681 (Version 1)
Quarter: 2024Q3

REPORT INFORMATION
  Report Type: Spontaneous
  Country: GB (occurrence: GB)
  Receive Date: 20240924
  Receipt Date: 20240924
  Transmission Date: 20241017
  Serious: Yes (Hospitalization, Other)
  Sender: MYLAN
  Company Number: GB-MYLANLABS-2024M1025042

PATIENT
  Sex: Male

DRUGS (2)
  1. CLOZARIL [Suspect]
     Active Substance: CLOZAPINE
     Indication: Schizophrenia
     Dosage: 600 MILLIGRAM, QD (DAILY)
     Route: 048
     Dates: start: 20220203
  2. CLOZARIL [Suspect]
     Active Substance: CLOZAPINE
     Dosage: 2500 MILLIGRAM, UNK
     Route: 048
     Dates: start: 20240313

REACTIONS (2)
  - Hospitalisation [Unknown]
  - Overdose [Unknown]

NARRATIVE: CASE EVENT DATE: 20240313
